FAERS Safety Report 18980833 (Version 2)
Quarter: 2022Q4

REPORT INFORMATION
  Report Type: Report from Study
  Country: US (occurrence: US)
  Receive Date: 20210308
  Receipt Date: 20221227
  Transmission Date: 20230112
  Serious: No
  Sender: FDA-Public Use
  Company Number: US-TAKEDA-2016BLT005188

PATIENT
  Sex: Female
  Weight: 57.14 kg

DRUGS (22)
  1. HUMAN IMMUNOGLOBULIN G\HYALURONIDASE RECOMBINANT HUMAN [Suspect]
     Active Substance: HUMAN IMMUNOGLOBULIN G\HYALURONIDASE RECOMBINANT HUMAN
     Indication: Immunodeficiency common variable
     Dosage: UNK
     Route: 065
  2. CUVITRU [Suspect]
     Active Substance: HUMAN IMMUNOGLOBULIN G
     Indication: Immunodeficiency common variable
     Dosage: 10 GRAM, Q2WEEKS
     Route: 058
     Dates: start: 20171212
  3. CUVITRU [Suspect]
     Active Substance: HUMAN IMMUNOGLOBULIN G
     Indication: Asthma
     Dosage: 6 GRAM, Q2WEEKS
     Route: 058
     Dates: start: 20171212
  4. CUVITRU [Suspect]
     Active Substance: HUMAN IMMUNOGLOBULIN G
     Indication: Chronic sinusitis
  5. HIZENTRA [Suspect]
     Active Substance: HUMAN IMMUNOGLOBULIN G
     Indication: Immunodeficiency common variable
     Route: 065
  6. ACETAMINOPHEN [Concomitant]
     Active Substance: ACETAMINOPHEN
  7. DIPHENHYDRAMINE [Concomitant]
     Active Substance: DIPHENHYDRAMINE
  8. LIDOCAINE [Concomitant]
     Active Substance: LIDOCAINE
  9. EPINEPHRINE [Concomitant]
     Active Substance: EPINEPHRINE
  10. VENTOLIN [Concomitant]
     Active Substance: ALBUTEROL SULFATE
  11. FASENRA [Concomitant]
     Active Substance: BENRALIZUMAB
  12. OMEPRAZOLE [Concomitant]
     Active Substance: OMEPRAZOLE
  13. VITAMIN D3 [Concomitant]
     Active Substance: CHOLECALCIFEROL
  14. COZAAR [Concomitant]
     Active Substance: LOSARTAN POTASSIUM
  15. NASONEX [Concomitant]
     Active Substance: MOMETASONE FUROATE
  16. QVAR [Concomitant]
     Active Substance: BECLOMETHASONE DIPROPIONATE
  17. ALVESCO [Concomitant]
     Active Substance: CICLESONIDE
  18. GUAIFENESIN + CODEINE [Concomitant]
  19. ZYRTEC [Concomitant]
     Active Substance: CETIRIZINE HYDROCHLORIDE
  20. CALCIUM\VITAMIN D [Concomitant]
     Active Substance: CALCIUM\VITAMIN D
  21. FAMOTIDINE [Concomitant]
     Active Substance: FAMOTIDINE
  22. ATORVASTATIN [Concomitant]
     Active Substance: ATORVASTATIN

REACTIONS (2)
  - Eosinophil count increased [Unknown]
  - Product dose omission issue [Unknown]
